FAERS Safety Report 4596975-0 (Version None)
Quarter: 2005Q1

REPORT INFORMATION
  Report Type: 
  Country: None (occurrence: None)
  Receive Date: 20050302
  Receipt Date: 20050221
  Transmission Date: 20050727
  Serious: Yes (Hospitalization)
  Sender: FDA-Public Use
  Company Number: ES-ABBOTT-05P-144-0291455-00

PATIENT
  Age: 34 Year
  Sex: Female

DRUGS (2)
  1. KALETRA [Suspect]
     Indication: HIV INFECTION
     Route: 048
     Dates: start: 20040204, end: 20041007
  2. KALETRA [Suspect]

REACTIONS (4)
  - EMPYEMA [None]
  - HAEMOPHILUS INFECTION [None]
  - PNEUMONIA MYCOPLASMAL [None]
  - RESPIRATORY TRACT INFECTION [None]
